FAERS Safety Report 5723082-3 (Version None)
Quarter: 2008Q2

REPORT INFORMATION
  Report Type: 
  Country: None (occurrence: None)
  Receive Date: 20080430
  Receipt Date: 20080418
  Transmission Date: 20081010
  Serious: Yes (Other)
  Sender: FDA-Public Use
  Company Number: US-JNJFOC-20080404826

PATIENT
  Sex: Male
  Weight: 145.15 kg

DRUGS (15)
  1. DURAGESIC-100 [Suspect]
     Indication: BACK INJURY
     Route: 062
  2. AMBIEN [Suspect]
     Indication: INSOMNIA
     Route: 048
  3. VALIUM [Suspect]
     Indication: MUSCLE RELAXANT THERAPY
     Route: 048
  4. PERCOCET [Suspect]
     Indication: PAIN
     Route: 048
  5. VITAMIN B COMPLEX CAP [Concomitant]
     Indication: MEDICAL DIET
     Route: 048
  6. ADVAIR HFA [Concomitant]
     Indication: ASTHMA
     Dosage: 250/ 50 MG, ONE PUFF DAILY
     Route: 055
  7. NASONEX [Concomitant]
     Indication: SEASONAL ALLERGY
     Dosage: ONE SPRAY IN EACH NOSTRIL DAILY
     Route: 045
  8. PREVACID [Concomitant]
     Indication: GASTRIC DISORDER
     Route: 048
  9. IBUPROFEN [Concomitant]
     Indication: PAIN
     Route: 048
  10. LIDODERM [Concomitant]
     Indication: PAIN
     Dosage: 3 IN 12 HOURS THEN AFTER 12 HOURS
     Route: 062
  11. TOPAMAX [Concomitant]
     Indication: CONVULSION
     Route: 048
  12. ASPIRIN [Concomitant]
     Indication: CARDIAC DISORDER
     Route: 048
  13. VITAMIN CAP [Concomitant]
     Indication: MEDICAL DIET
     Route: 048
  14. FEXOFENADINE [Concomitant]
     Indication: SEASONAL ALLERGY
     Route: 048
  15. SINGULAIR [Concomitant]
     Indication: ASTHMA
     Route: 048

REACTIONS (14)
  - BACK PAIN [None]
  - BLOOD CHOLESTEROL INCREASED [None]
  - DIABETES MELLITUS [None]
  - DISORIENTATION [None]
  - EATING DISORDER [None]
  - HYPERTENSION [None]
  - IMPAIRED GASTRIC EMPTYING [None]
  - INAPPROPRIATE SCHEDULE OF DRUG ADMINISTRATION [None]
  - INSOMNIA [None]
  - MUSCLE SPASMS [None]
  - PAIN [None]
  - PROSTATIC DISORDER [None]
  - SOMNOLENCE [None]
  - WEIGHT DECREASED [None]
